FAERS Safety Report 9891494 (Version 2)
Quarter: 2014Q1

REPORT INFORMATION
  Report Type: Report from Study
  Country: US (occurrence: US)
  Receive Date: 20140212
  Receipt Date: 20140326
  Transmission Date: 20141002
  Serious: Yes (Hospitalization, Other)
  Sender: FDA-Public Use
  Company Number: PHEH2014US002347

PATIENT
  Age: 53 Year
  Sex: Female
  Weight: 61.68 kg

DRUGS (7)
  1. TOBI PODHALER [Suspect]
     Indication: CYSTIC FIBROSIS
     Dosage: 112 MG, BID
     Route: 055
     Dates: start: 20140122, end: 20140123
  2. ALBUTEROL [Concomitant]
     Dosage: UNK
  3. PULMOZYME [Concomitant]
     Dosage: UNK
  4. DULERA [Concomitant]
     Dosage: UNK
  5. AZITHROMYCIN [Concomitant]
     Dosage: UNK
  6. RIFAMPIN [Concomitant]
     Dosage: UNK
  7. BUTRAL [Concomitant]
     Dosage: UNK

REACTIONS (5)
  - Cardiac failure congestive [Recovering/Resolving]
  - Feeling abnormal [Recovered/Resolved]
  - Dyspnoea [Not Recovered/Not Resolved]
  - Chest discomfort [Not Recovered/Not Resolved]
  - Headache [Recovering/Resolving]
